FAERS Safety Report 23454864 (Version 1)
Quarter: 2024Q1

REPORT INFORMATION
  Report Type: Report from Study
  Country: CL (occurrence: CL)
  Receive Date: 20240130
  Receipt Date: 20240130
  Transmission Date: 20240410
  Serious: Yes (Death)
  Sender: FDA-Public Use
  Company Number: CL-002147023-NVSC2024CL018644

PATIENT
  Age: 71 Year
  Sex: Female

DRUGS (1)
  1. HYRIMOZ [Suspect]
     Active Substance: ADALIMUMAB-ADAZ
     Indication: Rheumatoid arthritis
     Dosage: UNK
     Route: 065

REACTIONS (3)
  - Cardiogenic shock [Fatal]
  - Infarction [Fatal]
  - Illness [Fatal]

NARRATIVE: CASE EVENT DATE: 20231223
